FAERS Safety Report 8554202-3 (Version None)
Quarter: 2012Q3

REPORT INFORMATION
  Report Type: 
  Country: None (occurrence: None)
  Receive Date: 20120731
  Receipt Date: 20120723
  Transmission Date: 20120928
  Serious: Yes (Hospitalization, Other)
  Sender: FDA-Public Use
  Company Number: US-ELI_LILLY_AND_COMPANY-US201203005557

PATIENT
  Sex: Male

DRUGS (6)
  1. PROPOFOL [Concomitant]
     Dosage: 25 MG, BID
  2. LIPITOR [Concomitant]
     Dosage: 80 MG, QD
  3. LISINOPRIL [Concomitant]
     Dosage: 5 MG, QD
  4. EFFIENT [Suspect]
     Indication: STENT PLACEMENT
     Dosage: 10 MG, QD
     Dates: start: 20120214, end: 20120314
  5. HEPARIN [Concomitant]
     Dosage: UNK, EVERY 8 HRS (WHILE IN HOSPITAL)
  6. ASPIRIN [Concomitant]

REACTIONS (3)
  - SPEECH DISORDER [None]
  - CEREBROVASCULAR ACCIDENT [None]
  - AMNESIA [None]
